FAERS Safety Report 7620524-3 (Version None)
Quarter: 2011Q3

REPORT INFORMATION
  Report Type: 
  Country: None (occurrence: None)
  Receive Date: 20110719
  Receipt Date: 20110714
  Transmission Date: 20111222
  Serious: Yes (Death, Hospitalization)
  Sender: FDA-Public Use
  Company Number: TH-ROCHE-727725

PATIENT
  Age: 81 Year
  Sex: Female

DRUGS (16)
  1. MIRCERA [Suspect]
     Route: 058
     Dates: start: 20091019, end: 20091204
  2. BETALOC [Concomitant]
  3. KIDMIN [Concomitant]
     Dosage: 200 ML, HEMODIALYSIS
  4. MIRCERA [Suspect]
     Route: 058
     Dates: start: 20091204, end: 20100504
  5. LERCANIDIPINE [Concomitant]
  6. MICARDIS [Concomitant]
  7. MIRCERA [Suspect]
     Route: 058
     Dates: start: 20100805, end: 20100822
  8. MIRCERA [Suspect]
     Route: 058
     Dates: start: 20100504, end: 20100805
  9. SODA MINT [Concomitant]
  10. MEDICPLEX [Concomitant]
  11. MIRCERA [Suspect]
     Route: 058
     Dates: end: 20100901
  12. CHALKCAP [Concomitant]
  13. FOLIC ACID [Concomitant]
  14. RECORMON [Suspect]
     Route: 042
     Dates: start: 20100902, end: 20100913
  15. HYDERGINE [Concomitant]
  16. VYTORIN [Concomitant]
     Dosage: VYTORIN 10/40

REACTIONS (2)
  - MYOCARDIAL INFARCTION [None]
  - APLASIA PURE RED CELL [None]
